FAERS Safety Report 23378145 (Version 2)
Quarter: 2024Q1

REPORT INFORMATION
  Report Type: Spontaneous
  Country: JP (occurrence: JP)
  Receive Date: 20240108
  Receipt Date: 20240112
  Transmission Date: 20240409
  Serious: Yes (Death, Life-Threatening, Hospitalization, Other)
  Sender: FDA-Public Use
  Company Number: JP-MLMSERVICE-20231227-4748019-1

PATIENT
  Age: 46 Year
  Sex: Male

DRUGS (19)
  1. AZACITIDINE [Suspect]
     Active Substance: AZACITIDINE
     Indication: Salvage therapy
     Dosage: 75 MG/M2 FOR 7 DAYS
     Route: 042
  2. DEXAMETHASONE [Suspect]
     Active Substance: DEXAMETHASONE
     Indication: Acute myeloid leukaemia
     Route: 037
  3. VENETOCLAX [Suspect]
     Active Substance: VENETOCLAX
     Indication: Salvage therapy
     Dosage: 400 MG DAILY FOR 14 DAYS
     Route: 048
  4. VINCRISTINE [Suspect]
     Active Substance: VINCRISTINE
     Indication: Salvage therapy
     Dosage: 0.8 MG/M2 IV FOR 1 DAY
     Route: 042
  5. ETOPOSIDE [Suspect]
     Active Substance: ETOPOSIDE
     Indication: Salvage therapy
     Dosage: 100 MG/M2 IV FOR 5 DAYS
     Route: 042
  6. FLUDARABINE [Suspect]
     Active Substance: FLUDARABINE PHOSPHATE
     Indication: Salvage therapy
     Dosage: 21.6 MG/M2 IV FOR 5 DAYS
     Route: 042
  7. METHYLPREDNISOLONE [Suspect]
     Active Substance: METHYLPREDNISOLONE
     Indication: Acute graft versus host disease in skin
     Route: 042
  8. MICAFUNGIN [Suspect]
     Active Substance: MICAFUNGIN SODIUM
     Indication: Antifungal prophylaxis
     Dosage: ON DAYS  ? 20 TO ? 16.
     Route: 042
  9. MICAFUNGIN [Suspect]
     Active Substance: MICAFUNGIN SODIUM
     Dosage: ON DAYS ? 66 TO ? 35
     Route: 042
  10. CASPOFUNGIN [Suspect]
     Active Substance: CASPOFUNGIN
     Indication: Antifungal prophylaxis
     Dosage: ON DAYS ? 34 TO ? 21
     Route: 042
  11. CASPOFUNGIN [Suspect]
     Active Substance: CASPOFUNGIN
     Dosage: ON DAYS ? 9 TO ? 8
     Route: 042
  12. METHOTREXATE [Suspect]
     Active Substance: METHOTREXATE
     Indication: Acute myeloid leukaemia
     Route: 037
  13. FLUCONAZOLE [Suspect]
     Active Substance: FLUCONAZOLE
     Indication: Antifungal prophylaxis
     Dosage: ON DAYS ? 84 TO ? 67
     Route: 042
  14. FLUCONAZOLE [Suspect]
     Active Substance: FLUCONAZOLE
     Route: 042
  15. CYTARABINE [Suspect]
     Active Substance: CYTARABINE
     Indication: Acute myeloid leukaemia
     Route: 037
  16. CYTARABINE [Suspect]
     Active Substance: CYTARABINE
     Indication: Salvage therapy
     Dosage: FLAG-IDA: 21.6 MG/M2 IV FOR 5 DAYS?10 GRAM PER SQUARE METRE
     Route: 042
  17. CYTARABINE [Suspect]
     Active Substance: CYTARABINE
     Dosage: A-VVV: CYTARABINE 100 MG/M2 IV FOR 7 DAYS
     Route: 042
  18. IDARUBICIN [Suspect]
     Active Substance: IDARUBICIN
     Indication: Salvage therapy
     Dosage: CYTARABINE 100 MG/M2 IV FOR 7 DAYS
     Route: 042
  19. VINDESINE [Suspect]
     Active Substance: VINDESINE
     Indication: Salvage therapy
     Dosage: 6 MG/M2 IV FOR 1 DAY
     Route: 042

REACTIONS (14)
  - Fungal infection [Fatal]
  - Peritonitis [Fatal]
  - Cystitis [Fatal]
  - Haematological infection [Fatal]
  - Loss of consciousness [Fatal]
  - Central nervous system infection [Fatal]
  - Multiple organ dysfunction syndrome [Fatal]
  - Ileus paralytic [Fatal]
  - Fungal skin infection [Fatal]
  - Candida infection [Fatal]
  - Pneumonia fungal [Fatal]
  - Gastrointestinal fungal infection [Fatal]
  - Acute respiratory failure [Fatal]
  - Off label use [Unknown]
